FAERS Safety Report 4317038-5 (Version None)
Quarter: 2004Q1

REPORT INFORMATION
  Report Type: 
  Country: None (occurrence: None)
  Receive Date: 20040312
  Receipt Date: 20040302
  Transmission Date: 20041129
  Serious: Yes (Other)
  Sender: FDA-Public Use
  Company Number: 2004-03-0116

PATIENT
  Sex: Female

DRUGS (1)
  1. NITRO-DUR [Suspect]
     Dosage: TRANSDERMAL  YEAR (S)
     Route: 062

REACTIONS (2)
  - ANGIOPLASTY [None]
  - PHARMACEUTICAL PRODUCT COMPLAINT [None]
